FAERS Safety Report 6843602-5 (Version None)
Quarter: 2010Q3

REPORT INFORMATION
  Report Type: 
  Country: None (occurrence: None)
  Receive Date: 20100715
  Receipt Date: 20100614
  Transmission Date: 20110219
  Serious: No
  Sender: FDA-Public Use
  Company Number: US-BAYER-201016977BCC

PATIENT
  Sex: Female

DRUGS (5)
  1. ALEVE (CAPLET) [Suspect]
     Indication: LOCAL SWELLING
     Dosage: TOTAL DAILY DOSE: 220 MG  UNIT DOSE: 220 MG
     Route: 048
  2. ALEVE (CAPLET) [Suspect]
     Dosage: TOTAL DAILY DOSE: 880 MG  UNIT DOSE: 220 MG
     Route: 048
  3. SYNTHROID [Concomitant]
     Route: 065
  4. ESTROGEN PATCH [Concomitant]
     Route: 065
  5. ZANTAC [Concomitant]
     Route: 065

REACTIONS (3)
  - LOCAL SWELLING [None]
  - NECK PAIN [None]
  - NO ADVERSE EVENT [None]
